FAERS Safety Report 10171749 (Version 2)
Quarter: 2014Q2

REPORT INFORMATION
  Report Type: Spontaneous
  Country: US (occurrence: None)
  Receive Date: 20140512
  Receipt Date: 20140520
  Transmission Date: 20141212
  Serious: Yes (Hospitalization, Other)
  Sender: FDA-Public Use
  Company Number: AUR-APL-2014-05504

PATIENT
  Age: 69 Year
  Sex: Female

DRUGS (4)
  1. ACICLOVIR (ACICLOVIR) [Suspect]
     Indication: HERPES ZOSTER
     Dosage: 1.5 G INTRAVENOUS ACYCLOVIR (10MG/KG)
     Route: 042
  2. KETOROLAC [Suspect]
     Indication: PRODUCT USED FOR UNKNOWN INDICATION
  3. ONDANSETRON [Concomitant]
  4. ACICLOVIR (ACICLOVIR) [Suspect]
     Dosage: 4000 MG (800 MG, 5 IN 1 D) ORAL
     Route: 048

REACTIONS (10)
  - Mental status changes [None]
  - Hallucination, visual [None]
  - Renal injury [None]
  - Neurotoxicity [None]
  - Varicella virus test positive [None]
  - Aphasia [None]
  - Confusional state [None]
  - Brain scan abnormal [None]
  - Dizziness [None]
  - Dysphemia [None]
